FAERS Safety Report 16918833 (Version 6)
Quarter: 2020Q4

REPORT INFORMATION
  Report Type: Spontaneous
  Country: US (occurrence: US)
  Receive Date: 20191015
  Receipt Date: 20201228
  Transmission Date: 20210113
  Serious: Yes (Other)
  Sender: FDA-Public Use
  Company Number: US-PFIZER INC-2019312145

PATIENT
  Age: 19 Year
  Sex: Male
  Weight: 120 kg

DRUGS (4)
  1. SOMAVERT [Suspect]
     Active Substance: PEGVISOMANT
     Indication: PITUITARY TUMOUR
     Dosage: 10 MG, 1X/DAY (10 MG SDV INJ KIT W/ PFS DILUENT)
     Route: 058
     Dates: start: 20190101
  2. SOMAVERT [Suspect]
     Active Substance: PEGVISOMANT
     Indication: HYPOTHALAMO-PITUITARY DISORDER
     Dosage: 20 MG, DAILY
     Route: 058
  3. SOMATULINE DEPOT [Suspect]
     Active Substance: LANREOTIDE ACETATE
     Dosage: UNK
  4. SOMAVERT [Suspect]
     Active Substance: PEGVISOMANT
     Indication: ACROMEGALY
     Dosage: 20 MG, 1X/DAY (20 MG UNDER THE SKIN)
     Route: 058
     Dates: start: 20190702

REACTIONS (5)
  - Anal fissure [Unknown]
  - Product dose omission issue [Unknown]
  - Constipation [Unknown]
  - Incorrect dose administered [Unknown]
  - Insulin-like growth factor increased [Unknown]

NARRATIVE: CASE EVENT DATE: 20190909
